FAERS Safety Report 7149560-0 (Version None)
Quarter: 2010Q4

REPORT INFORMATION
  Report Type: 
  Country: None (occurrence: None)
  Receive Date: 20101209
  Receipt Date: 20101203
  Transmission Date: 20110411
  Serious: Yes (Hospitalization)
  Sender: FDA-Public Use
  Company Number: US-B.I. PHARMACEUTICALS,INC./RIDGEFIELD-2010-BP-13722BP

PATIENT
  Sex: Male

DRUGS (10)
  1. SPIRIVA [Suspect]
     Indication: LUNG DISORDER
     Dosage: 18 MCG
     Route: 055
     Dates: start: 20090101, end: 20091201
  2. SPIRIVA [Suspect]
     Dosage: 18 MCG
     Route: 055
     Dates: start: 20101101
  3. ALBUTEROL [Concomitant]
     Indication: LUNG DISORDER
  4. ATENOLOL [Concomitant]
     Indication: HYPERTENSION
  5. ETOLAC [Concomitant]
     Indication: ARTHRITIS
  6. AGGRENOX [Concomitant]
     Indication: CEREBROVASCULAR ACCIDENT
  7. GABAPENTIN [Concomitant]
     Indication: NEUROPATHY PERIPHERAL
  8. OMEPRAZOLE [Concomitant]
     Indication: ABDOMINAL DISCOMFORT
  9. SIMVASTATIN [Concomitant]
     Indication: BLOOD CHOLESTEROL INCREASED
  10. FUROSEMIDE [Concomitant]
     Indication: FLUID RETENTION

REACTIONS (2)
  - HIP FRACTURE [None]
  - WALKING AID USER [None]
